FAERS Safety Report 5657667-X (Version None)
Quarter: 2008Q1

REPORT INFORMATION
  Report Type: 
  Country: None (occurrence: None)
  Receive Date: 20080310
  Receipt Date: 20080229
  Transmission Date: 20080703
  Serious: Yes (Hospitalization)
  Sender: FDA-Public Use
  Company Number: PHEH2008US01592

PATIENT
  Age: 85 Year
  Sex: Male
  Weight: 77 kg

DRUGS (4)
  1. AVODART [Concomitant]
     Indication: HYPERTENSION
     Dosage: 0.5 MG, QD
     Route: 048
  2. EXELON [Suspect]
     Indication: DEMENTIA ALZHEIMER'S TYPE
     Dosage: 4.6 MG, QD
     Route: 062
     Dates: start: 20080125, end: 20080130
  3. AGGRENOX [Concomitant]
     Dosage: 200 MG/25 MG, TID
     Route: 048
  4. ACETAMINOPHEN [Concomitant]

REACTIONS (10)
  - ASTHENIA [None]
  - BAND NEUTROPHIL PERCENTAGE INCREASED [None]
  - C-REACTIVE PROTEIN INCREASED [None]
  - CHILLS [None]
  - DRUG ERUPTION [None]
  - EOSINOPHIL COUNT INCREASED [None]
  - FATIGUE [None]
  - PETECHIAE [None]
  - PRURITUS [None]
  - PYREXIA [None]
